FAERS Safety Report 11507712 (Version 1)
Quarter: 2015Q3

REPORT INFORMATION
  Report Type: Spontaneous
  Country: US (occurrence: US)
  Receive Date: 20150903
  Receipt Date: 20150903
  Transmission Date: 20151125
  Serious: No
  Sender: FDA-Public Use
  Company Number: US-ELI_LILLY_AND_COMPANY-US200909002560

PATIENT
  Age: 42 Year
  Sex: Male

DRUGS (4)
  1. HUMALOG MIX50/50 [Suspect]
     Active Substance: INSULIN LISPRO
  2. METFORMIN [Concomitant]
     Active Substance: METFORMIN HYDROCHLORIDE
  3. HUMALOG [Suspect]
     Active Substance: INSULIN LISPRO
     Dosage: 10 U, 3/D
  4. HUMALOG [Suspect]
     Active Substance: INSULIN LISPRO
     Dosage: 4 U, UNK
     Dates: start: 20090909, end: 20090909

REACTIONS (5)
  - Drug dispensing error [Unknown]
  - Blood glucose increased [Unknown]
  - Drug ineffective [Unknown]
  - Blood glucose decreased [Recovered/Resolved]
  - Wrong drug administered [Unknown]

NARRATIVE: CASE EVENT DATE: 200909
